FAERS Safety Report 7897902-0 (Version None)
Quarter: 2011Q4

REPORT INFORMATION
  Report Type: 
  Country: None (occurrence: None)
  Receive Date: 20111107
  Receipt Date: 20111028
  Transmission Date: 20120403
  Serious: Yes (Death)
  Sender: FDA-Public Use
  Company Number: DE-GENZYME-FABR-1002115

PATIENT

DRUGS (2)
  1. FABRAZYME [Suspect]
     Indication: FABRY'S DISEASE
  2. REPLAGAL [Suspect]
     Indication: FABRY'S DISEASE

REACTIONS (2)
  - DEATH [None]
  - PAIN [None]
